FAERS Safety Report 7517947-X (Version None)
Quarter: 2011Q2

REPORT INFORMATION
  Report Type: 
  Country: None (occurrence: None)
  Receive Date: 20110527
  Receipt Date: 20110527
  Transmission Date: 20111010
  Serious: Yes (Hospitalization)
  Sender: FDA-Public Use
  Company Number: None

PATIENT
  Age: 67 Year
  Sex: Male
  Weight: 81.3 kg

DRUGS (2)
  1. DISULFIRAM [Suspect]
     Indication: METASTATIC MALIGNANT MELANOMA
     Dosage: DISULFIRAM 250MG 1X/DAY ORAL TABLETS
     Route: 048
     Dates: start: 20110309, end: 20110404
  2. ZINC [Suspect]
     Dosage: ZINC 50MG 3X/DAY ORAL TABLETS
     Route: 048

REACTIONS (6)
  - FALL [None]
  - METASTASES TO THORAX [None]
  - CONFUSIONAL STATE [None]
  - MUSCULAR WEAKNESS [None]
  - METASTASES TO CENTRAL NERVOUS SYSTEM [None]
  - NEOPLASM PROGRESSION [None]
